FAERS Safety Report 18900035 (Version 1)
Quarter: 2021Q1

REPORT INFORMATION
  Report Type: Spontaneous
  Country: US (occurrence: US)
  Receive Date: 20210216
  Receipt Date: 20210216
  Transmission Date: 20210420
  Serious: No
  Sender: FDA-Public Use
  Company Number: US-BAYER-2021-068176

PATIENT
  Sex: Female

DRUGS (1)
  1. CLARITIN [Suspect]
     Active Substance: LORATADINE
     Indication: PRURITUS
     Dosage: UNK
     Route: 065
     Dates: start: 20210214

REACTIONS (2)
  - Expired product administered [Unknown]
  - Product use in unapproved indication [None]

NARRATIVE: CASE EVENT DATE: 20210214
